FAERS Safety Report 5323905-6 (Version None)
Quarter: 2007Q2

REPORT INFORMATION
  Report Type: 
  Country: None (occurrence: None)
  Receive Date: 20070220
  Receipt Date: 20070108
  Transmission Date: 20071010
  Serious: No
  Sender: FDA-Public Use
  Company Number: WAES 0701USA00919

PATIENT
  Sex: Male

DRUGS (1)
  1. JANUVIA [Suspect]
     Indication: DRUG USE FOR UNKNOWN INDICATION
     Dosage: 100MG; DAILY; PO
     Route: 048

REACTIONS (2)
  - NASAL CONGESTION [None]
  - RHINORRHOEA [None]
